FAERS Safety Report 5483665-5 (Version None)
Quarter: 2007Q4

REPORT INFORMATION
  Report Type: 
  Country: None (occurrence: None)
  Receive Date: 20071012
  Receipt Date: 20071007
  Transmission Date: 20080405
  Serious: Yes (Hospitalization)
  Sender: FDA-Public Use
  Company Number: US-ELI_LILLY_AND_COMPANY-US200710001998

PATIENT
  Sex: Male
  Weight: 104.31 kg

DRUGS (9)
  1. BYETTA [Suspect]
     Indication: TYPE 2 DIABETES MELLITUS
     Dosage: 5 UG, 2/D
     Route: 058
     Dates: start: 20070501
  2. BYETTA [Suspect]
     Dosage: 10 UG, 2/D
     Route: 058
     Dates: start: 20070601
  3. AMARYL [Concomitant]
     Indication: DIABETES MELLITUS
     Dosage: 4 MG, UNKNOWN
     Route: 048
  4. ASPIRIN [Concomitant]
     Dosage: UNK, UNKNOWN
     Route: 048
  5. COUMADIN [Concomitant]
     Indication: THROMBOSIS
     Dosage: UNK, UNKNOWN
     Route: 048
  6. LIPITOR [Concomitant]
     Indication: BLOOD CHOLESTEROL
     Dosage: UNK, UNKNOWN
     Route: 048
  7. PREDNISONE [Concomitant]
     Indication: ASTHMA
     Dosage: UNK, UNKNOWN
     Route: 065
     Dates: start: 20060101
  8. ADVAIR DISKUS 100/50 [Concomitant]
     Indication: ASTHMA
     Dosage: UNK, UNKNOWN
     Route: 055
  9. OXYGEN [Concomitant]
     Indication: ASTHMA
     Dosage: UNK LITER, EACH EVENING
     Route: 065
     Dates: start: 20060101

REACTIONS (4)
  - BLOOD POTASSIUM DECREASED [None]
  - DECREASED APPETITE [None]
  - LOCALISED INFECTION [None]
  - WEIGHT DECREASED [None]
